FAERS Safety Report 25760001 (Version 1)
Quarter: 2025Q3

REPORT INFORMATION
  Report Type: Spontaneous
  Country: US (occurrence: US)
  Receive Date: 20250904
  Receipt Date: 20250904
  Transmission Date: 20251021
  Serious: No
  Sender: SANDOZ
  Company Number: US-002147023-NVSC2019US079014

PATIENT
  Age: 21 Year
  Sex: Female

DRUGS (26)
  1. PREDNISOLONE ACETATE [Suspect]
     Active Substance: PREDNISOLONE ACETATE
     Route: 047
     Dates: start: 20191018, end: 20191101
  2. PREDNISOLONE ACETATE [Suspect]
     Active Substance: PREDNISOLONE ACETATE
     Route: 047
     Dates: start: 20200327, end: 20200424
  3. PREDNISOLONE ACETATE [Suspect]
     Active Substance: PREDNISOLONE ACETATE
     Route: 047
     Dates: start: 20200327, end: 20200424
  4. PREDNISOLONE ACETATE [Suspect]
     Active Substance: PREDNISOLONE ACETATE
     Route: 047
     Dates: start: 20191102, end: 20200123
  5. PREDNISOLONE ACETATE [Suspect]
     Active Substance: PREDNISOLONE ACETATE
     Indication: Eye inflammation
     Route: 047
     Dates: start: 201909, end: 20191004
  6. PREDNISOLONE ACETATE [Suspect]
     Active Substance: PREDNISOLONE ACETATE
     Route: 047
     Dates: start: 20200124, end: 20200326
  7. PREDNISOLONE ACETATE [Suspect]
     Active Substance: PREDNISOLONE ACETATE
     Route: 047
     Dates: start: 20200124, end: 20200326
  8. PREDNISOLONE ACETATE [Suspect]
     Active Substance: PREDNISOLONE ACETATE
     Route: 047
     Dates: start: 20191005, end: 20191017
  9. PREDNISOLONE ACETATE [Suspect]
     Active Substance: PREDNISOLONE ACETATE
     Route: 047
     Dates: start: 20200227, end: 20200326
  10. PREDNISOLONE ACETATE [Suspect]
     Active Substance: PREDNISOLONE ACETATE
     Route: 047
     Dates: start: 20200227, end: 20200326
  11. VORETIGENE NEPARVOVEC [Suspect]
     Active Substance: VORETIGENE NEPARVOVEC
     Dosage: 300 UL, ONCE/SINGLE (LEFT EYE)
     Dates: start: 20190626, end: 20190626
  12. VORETIGENE NEPARVOVEC [Suspect]
     Active Substance: VORETIGENE NEPARVOVEC
     Indication: Leber^s congenital amaurosis
     Dosage: 300 UL, ONCE/SINGLE (RIGHT EYE)
     Dates: start: 20190618, end: 20190618
  13. Atropair [Concomitant]
     Route: 047
     Dates: start: 20190627, end: 20190701
  14. Atropair [Concomitant]
     Indication: Prophylaxis
     Route: 047
     Dates: start: 20190619, end: 20190625
  15. PREDNISOLONE ACETATE [Concomitant]
     Active Substance: PREDNISOLONE ACETATE
     Route: 065
     Dates: start: 20190716
  16. PREDNISOLONE ACETATE [Concomitant]
     Active Substance: PREDNISOLONE ACETATE
     Route: 065
     Dates: start: 20190709, end: 20190715
  17. PREDNISOLONE ACETATE [Concomitant]
     Active Substance: PREDNISOLONE ACETATE
     Route: 065
     Dates: start: 20190709, end: 20190715
  18. PREDNISOLONE ACETATE [Concomitant]
     Active Substance: PREDNISOLONE ACETATE
     Route: 065
     Dates: start: 20190702, end: 20190708
  19. PREDNISOLONE ACETATE [Concomitant]
     Active Substance: PREDNISOLONE ACETATE
     Route: 065
     Dates: start: 20190702, end: 20190708
  20. PREDNISOLONE ACETATE [Concomitant]
     Active Substance: PREDNISOLONE ACETATE
     Route: 065
     Dates: start: 20190627, end: 20190701
  21. PREDNISOLONE ACETATE [Concomitant]
     Active Substance: PREDNISOLONE ACETATE
     Route: 047
     Dates: start: 20190626, end: 20190701
  22. PREDNISOLONE ACETATE [Concomitant]
     Active Substance: PREDNISOLONE ACETATE
     Indication: Product used for unknown indication
     Route: 065
     Dates: start: 20250619, end: 20250625
  23. PREDNISONE [Concomitant]
     Active Substance: PREDNISONE
     Route: 048
     Dates: start: 20190716, end: 20190718
  24. PREDNISONE [Concomitant]
     Active Substance: PREDNISONE
     Indication: Prophylaxis
     Route: 048
     Dates: start: 20190713, end: 20190715
  25. PREDNISONE [Concomitant]
     Active Substance: PREDNISONE
     Route: 048
     Dates: start: 20190719, end: 20190721
  26. TRIAMCINOLONE ACETONIDE [Concomitant]
     Active Substance: TRIAMCINOLONE ACETONIDE
     Indication: Product used for unknown indication
     Route: 065

REACTIONS (17)
  - Ocular hypertension [Recovered/Resolved]
  - Ocular hypertension [Recovered/Resolved]
  - Ocular hypertension [Recovered/Resolved]
  - Retinal degeneration [Not Recovered/Not Resolved]
  - Retinal degeneration [Not Recovered/Not Resolved]
  - Eye inflammation [Recovered/Resolved]
  - Keratic precipitates [Recovered/Resolved]
  - Vitreal cells [Recovered/Resolved]
  - Anterior chamber cell [Recovered/Resolved]
  - Eye inflammation [Recovered/Resolved]
  - Vitreal cells [Recovered/Resolved]
  - Anterior chamber cell [Recovered/Resolved]
  - Eye inflammation [Recovered/Resolved]
  - Keratic precipitates [Recovered/Resolved]
  - Anterior chamber cell [Recovered/Resolved]
  - Vitreal cells [Recovered/Resolved]
  - Rash [Recovered/Resolved]

NARRATIVE: CASE EVENT DATE: 20190909
